FAERS Safety Report 6839515-5 (Version None)
Quarter: 2010Q3

REPORT INFORMATION
  Report Type: 
  Country: None (occurrence: None)
  Receive Date: 20100714
  Receipt Date: 20091117
  Transmission Date: 20110219
  Serious: No
  Sender: FDA-Public Use
  Company Number: A0817457A

PATIENT
  Sex: Male

DRUGS (4)
  1. FLOVENT [Suspect]
     Indication: ASTHMA
     Route: 055
     Dates: start: 20091116
  2. ALBUTEROL SULFATE AND IPRATROPIUM BROMIDE [Suspect]
     Route: 055
     Dates: start: 20091116
  3. ALBUTEROL [Suspect]
     Indication: ASTHMA
     Route: 055
  4. PROVENTIL [Concomitant]

REACTIONS (2)
  - HYPOAESTHESIA [None]
  - MUSCULOSKELETAL STIFFNESS [None]
